FAERS Safety Report 7522184-9 (Version None)
Quarter: 2011Q2

REPORT INFORMATION
  Report Type: 
  Country: None (occurrence: None)
  Receive Date: 20110523
  Receipt Date: 20110510
  Transmission Date: 20111010
  Serious: Yes (Hospitalization)
  Sender: FDA-Public Use
  Company Number: 2011PROUSA00299

PATIENT
  Age: 68 Year
  Sex: Male
  Weight: 106.6 kg

DRUGS (1)
  1. PROVENGE [Suspect]
     Indication: PROSTATE CANCER METASTATIC
     Dosage: 250 ML, SINGLE, INTRAVENOUS
     Route: 042
     Dates: start: 20110324, end: 20110324

REACTIONS (10)
  - URINARY TRACT INFECTION [None]
  - ENTEROCOCCUS TEST POSITIVE [None]
  - PAIN [None]
  - ANAEMIA [None]
  - SEPSIS [None]
  - DEHYDRATION [None]
  - PYREXIA [None]
  - ASTHENIA [None]
  - HYPOTENSION [None]
  - MALAISE [None]
